FAERS Safety Report 14426704 (Version 1)
Quarter: 2018Q1

REPORT INFORMATION
  Report Type: Spontaneous
  Country: US (occurrence: US)
  Receive Date: 20180123
  Receipt Date: 20180123
  Transmission Date: 20180509
  Serious: Yes (Hospitalization)
  Sender: FDA-Public Use
  Company Number: US-GLAXOSMITHKLINE-US2018010126

PATIENT
  Age: 83 Year
  Sex: Female

DRUGS (1)
  1. BREO ELLIPTA [Suspect]
     Active Substance: FLUTICASONE FUROATE\VILANTEROL TRIFENATATE
     Indication: SPUTUM INCREASED
     Dosage: 1 PUFF(S), 1D
     Route: 055
     Dates: start: 201710

REACTIONS (6)
  - Nasopharyngitis [Recovering/Resolving]
  - Amnesia [Not Recovered/Not Resolved]
  - Pyrexia [Recovering/Resolving]
  - Cystitis [Recovering/Resolving]
  - Chest pain [Recovering/Resolving]
  - Dyspnoea [Recovering/Resolving]

NARRATIVE: CASE EVENT DATE: 20180101
